FAERS Safety Report 11594959 (Version 3)
Quarter: 2016Q1

REPORT INFORMATION
  Report Type: Not Available
  Country: FR (occurrence: FR)
  Receive Date: 20151005
  Receipt Date: 20160120
  Transmission Date: 20160525
  Serious: Yes (Hospitalization, Other)
  Sender: FDA-Public Use
  Company Number: FR-MUNDIPHARMA DS AND PHARMACOVIGILANCE-GBR-2015-0031112

PATIENT
  Age: 85 Year
  Sex: Female

DRUGS (15)
  1. TAHOR [Concomitant]
     Active Substance: ATORVASTATIN CALCIUM
     Dosage: 40 MG, DAILY
  2. LANTUS [Concomitant]
     Active Substance: INSULIN GLARGINE
     Dosage: 16IU AM/ 9IU PM
     Route: 058
  3. INEXIUM                            /01479302/ [Concomitant]
     Active Substance: ESOMEPRAZOLE MAGNESIUM
     Dosage: 40 MG, DAILY
     Route: 048
  4. BISOPROLOL HEMIFUMARATE [Concomitant]
     Active Substance: BISOPROLOL FUMARATE
     Dosage: 5 MG, DAILY
  5. PYOSTACINE [Concomitant]
     Active Substance: PRISTINAMYCIN
     Dosage: 6 DF, DAILY
     Dates: end: 20150330
  6. LYRICA [Concomitant]
     Active Substance: PREGABALIN
     Dosage: 25 MG, TID
  7. PREVISCAN                          /00789001/ [Concomitant]
     Active Substance: FLUINDIONE
     Indication: ATRIAL FIBRILLATION
     Dosage: 1.75 DF, DAILY
  8. OXYCONTIN [Suspect]
     Active Substance: OXYCODONE HYDROCHLORIDE
     Indication: PAIN
     Dosage: 40 MG, BID
     Route: 048
     Dates: start: 20150309
  9. OXYNORM 10 MG, GELULE [Suspect]
     Active Substance: OXYCODONE HYDROCHLORIDE
     Indication: PAIN
     Dosage: 10 MG, Q4H
     Route: 048
     Dates: start: 20150309
  10. TAREG [Concomitant]
     Active Substance: VALSARTAN
     Dosage: 1 DF, DAILY
     Route: 048
  11. ESIDREX [Concomitant]
     Active Substance: HYDROCHLOROTHIAZIDE
     Dosage: 25 MG, DAILY
  12. HYDROXYZINE HYDROCHLORIDE. [Concomitant]
     Active Substance: HYDROXYZINE HYDROCHLORIDE
     Dosage: 1 TABLET, DAILY
  13. LASILIX                            /00032601/ [Concomitant]
     Active Substance: FUROSEMIDE
     Dosage: 40 MG, UNK
     Route: 048
  14. LACTULOSE. [Concomitant]
     Active Substance: LACTULOSE
     Dosage: 1 DF, DAILY
  15. NOVORAPID [Concomitant]
     Active Substance: INSULIN ASPART
     Dosage: 3 IU, DAILY

REACTIONS (2)
  - Overdose [Recovered/Resolved]
  - Cardiac failure [Recovered/Resolved]

NARRATIVE: CASE EVENT DATE: 20150314
